FAERS Safety Report 7704942-0 (Version None)
Quarter: 2011Q3

REPORT INFORMATION
  Report Type: 
  Country: None (occurrence: None)
  Receive Date: 20110823
  Receipt Date: 20110819
  Transmission Date: 20111222
  Serious: No
  Sender: FDA-Public Use
  Company Number: US-PFIZER INC-2011192243

PATIENT
  Sex: Female
  Weight: 63.492 kg

DRUGS (2)
  1. CHANTIX [Suspect]
     Indication: SMOKING CESSATION THERAPY
     Dosage: 0.5 MG, 1X/DAY
     Route: 048
     Dates: start: 20110812, end: 20110801
  2. CHANTIX [Suspect]
     Dosage: UNK
     Dates: start: 20110801

REACTIONS (5)
  - THIRST [None]
  - DRY MOUTH [None]
  - DYSGEUSIA [None]
  - NERVOUSNESS [None]
  - DRUG INEFFECTIVE [None]
